FAERS Safety Report 5246648-6 (Version None)
Quarter: 2007Q1

REPORT INFORMATION
  Report Type: 
  Country: None (occurrence: None)
  Receive Date: 20070226
  Receipt Date: 20070215
  Transmission Date: 20070707
  Serious: Yes (Other)
  Sender: FDA-Public Use
  Company Number: GB-ROCHE-483657

PATIENT
  Age: 38 Year
  Sex: Female
  Weight: 81.7 kg

DRUGS (1)
  1. XENICAL [Suspect]
     Indication: OBESITY
     Route: 048
     Dates: start: 20061110, end: 20061220

REACTIONS (4)
  - COORDINATION ABNORMAL [None]
  - FACIAL PALSY [None]
  - HYPOAESTHESIA [None]
  - MONOPLEGIA [None]
